FAERS Safety Report 23535713 (Version 3)
Quarter: 2024Q2

REPORT INFORMATION
  Report Type: Other
  Country: US (occurrence: None)
  Receive Date: 20240218
  Receipt Date: 20240410
  Transmission Date: 20240716
  Serious: Yes (Other)
  Sender: FDA-Public Use
  Company Number: US-ROCHE-3426614

PATIENT
  Age: 61 Year
  Sex: Female
  Weight: 58.112 kg

DRUGS (1)
  1. OCREVUS [Suspect]
     Active Substance: OCRELIZUMAB
     Indication: Relapsing-remitting multiple sclerosis
     Dosage: DATE OF TREATMENT 02/MAR/2023, /AUG/2023
     Route: 042
     Dates: start: 20230216

REACTIONS (5)
  - Headache [Recovered/Resolved]
  - Hypertension [Recovered/Resolved]
  - Tooth fracture [Recovered/Resolved]
  - Herpes zoster [Not Recovered/Not Resolved]
  - Pain [Not Recovered/Not Resolved]

NARRATIVE: CASE EVENT DATE: 20230801
